FAERS Safety Report 13455885 (Version 13)
Quarter: 2018Q4

REPORT INFORMATION
  Report Type: Report from Study
  Country: US (occurrence: US)
  Receive Date: 20170418
  Receipt Date: 20181218
  Transmission Date: 20190204
  Serious: Yes (Death, Hospitalization, Disabling, Other)
  Sender: FDA-Public Use
  Company Number: PHHY2017US054960

PATIENT
  Age: 7 Year
  Sex: Male
  Weight: 26.9 kg

DRUGS (12)
  1. KINERET [Suspect]
     Active Substance: ANAKINRA
     Dosage: 60 MG, UNK
     Route: 065
     Dates: start: 20170317, end: 20170322
  2. PREDNISOLONE. [Concomitant]
     Active Substance: PREDNISOLONE
     Indication: STILL^S DISEASE
     Dosage: 3 MG, QD
     Route: 065
     Dates: start: 20160822
  3. METHOTREXATE. [Suspect]
     Active Substance: METHOTREXATE
     Indication: IMMUNOMODULATORY THERAPY
     Dosage: 100 MG, UNK
     Route: 065
     Dates: start: 20160509, end: 20160916
  4. KINERET [Suspect]
     Active Substance: ANAKINRA
     Indication: JUVENILE IDIOPATHIC ARTHRITIS
     Dosage: 45 MG, QD
     Route: 065
     Dates: start: 20160323, end: 20160508
  5. ACTEMRA [Suspect]
     Active Substance: TOCILIZUMAB
     Indication: IMMUNOMODULATORY THERAPY
     Dosage: 340 MG, QD
     Route: 065
     Dates: start: 20170127
  6. ACTEMRA [Suspect]
     Active Substance: TOCILIZUMAB
     Indication: JUVENILE IDIOPATHIC ARTHRITIS
     Dosage: 340 MG, QD
     Route: 065
     Dates: start: 20160916, end: 20161223
  7. ILARIS [Suspect]
     Active Substance: CANAKINUMAB
     Indication: JUVENILE IDIOPATHIC ARTHRITIS
     Dosage: 100 MG, QD
     Route: 065
     Dates: start: 20160509, end: 20160916
  8. KINERET [Suspect]
     Active Substance: ANAKINRA
     Indication: IMMUNOMODULATORY THERAPY
     Dosage: UNK
     Route: 065
     Dates: end: 20170316
  9. KINERET [Suspect]
     Active Substance: ANAKINRA
     Dosage: 100 MG, UNK
     Route: 065
     Dates: start: 20170322
  10. METHOTREXATE. [Suspect]
     Active Substance: METHOTREXATE
     Indication: STILL^S DISEASE
     Dosage: 12.5 MG, QD
     Route: 065
     Dates: start: 20160309, end: 20160525
  11. METHOTREXATE. [Suspect]
     Active Substance: METHOTREXATE
     Indication: JUVENILE IDIOPATHIC ARTHRITIS
     Dosage: 7.5 MG, QD
     Route: 065
     Dates: start: 20160525, end: 20161223
  12. ACTEMRA [Suspect]
     Active Substance: TOCILIZUMAB
     Dosage: UNK
     Route: 065
     Dates: start: 20170224, end: 20170317

REACTIONS (13)
  - Hypoxia [Fatal]
  - Tachypnoea [Fatal]
  - Corona virus infection [Not Recovered/Not Resolved]
  - Cough [Not Recovered/Not Resolved]
  - Juvenile idiopathic arthritis [Unknown]
  - Lymphadenopathy [Fatal]
  - Lymph node pain [Fatal]
  - Infection [Recovered/Resolved]
  - Pneumonia viral [Recovered/Resolved]
  - Pneumonia adenoviral [Recovered/Resolved]
  - Haemophagocytic lymphohistiocytosis [Fatal]
  - Pyrexia [Fatal]
  - Respiratory distress [Not Recovered/Not Resolved]

NARRATIVE: CASE EVENT DATE: 20170106
